FAERS Safety Report 9916550 (Version 2)
Quarter: 2014Q2

REPORT INFORMATION
  Report Type: Spontaneous
  Country: GB (occurrence: None)
  Receive Date: 20140219
  Receipt Date: 20140409
  Transmission Date: 20141212
  Serious: Yes (Life-Threatening, Hospitalization, Disabling, Other)
  Sender: FDA-Public Use
  Company Number: AUR-APL-2014-01773

PATIENT
  Age: 69 Year
  Sex: Male
  Weight: 74 kg

DRUGS (12)
  1. MIRTAZAPINE [Suspect]
     Indication: DEMENTIA
     Dosage: (45 MG), ORAL
     Route: 048
     Dates: start: 2012
  2. OLANZAPINE [Suspect]
     Indication: PRODUCT USED FOR UNKNOWN INDICATION
     Dosage: 10 MG (10 MG, 1 IN 1 D), ORAL
     Route: 048
     Dates: start: 2012
  3. CLONAZEPAM [Suspect]
     Indication: AGGRESSION
     Route: 048
     Dates: start: 2012
  4. EPILIM [Suspect]
     Indication: MOOD ALTERED
     Dosage: 800 MG (400 MG, 2 IN 1 D), ORAL
     Route: 048
     Dates: start: 2012
  5. ALFUZOSIN HYDROCHLORIDE (ALFUZOSIN HYDROCHLORIDE) [Concomitant]
  6. ASPIRIN (ACETYLSALICYLIC ACID [Concomitant]
  7. ATORVASTATIN (ATORVASTATIN) [Concomitant]
  8. CLOPIDOGREL (CLOPIDOGREL) [Concomitant]
  9. FYBOGEL (PLANTAGO OVATA) [Concomitant]
  10. ISOSORBIDE MONONITRATE (ISOSORBIDE MONITRATE) [Concomitant]
  11. IVABRADINE (IVABRADINE) [Concomitant]
  12. OMEPRAZOLE (OMEPRAZOLE) [Concomitant]

REACTIONS (4)
  - Hyponatraemia [None]
  - Convulsion [None]
  - Inappropriate antidiuretic hormone secretion [None]
  - Dehydration [None]
